FAERS Safety Report 17806351 (Version 1)
Quarter: 2020Q2

REPORT INFORMATION
  Report Type: Spontaneous
  Country: LT (occurrence: LT)
  Receive Date: 20200520
  Receipt Date: 20200520
  Transmission Date: 20200714
  Serious: Yes (Hospitalization)
  Sender: FDA-Public Use
  Company Number: LT-TEVA-2020-LT-1237028

PATIENT
  Age: 74 Year
  Sex: Female
  Weight: 80 kg

DRUGS (1)
  1. NEBIVOLOL. [Suspect]
     Active Substance: NEBIVOLOL
     Indication: INTENTIONAL OVERDOSE
     Dosage: DOSAGE APPROXIMATELY 10 TABLETS IN INTENTION OF SUICIDE
     Route: 048
     Dates: start: 20200427, end: 20200427

REACTIONS (5)
  - Off label use [Recovering/Resolving]
  - Suicide attempt [Recovering/Resolving]
  - Toxic encephalopathy [Recovering/Resolving]
  - Respiration abnormal [Recovering/Resolving]
  - Blood pressure increased [Recovering/Resolving]

NARRATIVE: CASE EVENT DATE: 20200427
